FAERS Safety Report 7546302-1 (Version None)
Quarter: 2011Q2

REPORT INFORMATION
  Report Type: 
  Country: None (occurrence: None)
  Receive Date: 20110614
  Receipt Date: 20040521
  Transmission Date: 20111010
  Serious: Yes (Other)
  Sender: FDA-Public Use
  Company Number: PHFR2004GB02210

PATIENT
  Sex: Female

DRUGS (2)
  1. CLOZAPINE [Suspect]
     Indication: SCHIZOPHRENIA
     Dosage: 125 MG, BID
     Route: 048
     Dates: start: 20040212
  2. ASPIRIN [Concomitant]
     Dosage: UNKNOWN

REACTIONS (5)
  - BODY TEMPERATURE DECREASED [None]
  - HYPERSOMNIA [None]
  - COLD SWEAT [None]
  - VOMITING [None]
  - PERIPHERAL COLDNESS [None]
